FAERS Safety Report 10253818 (Version 1)
Quarter: 2014Q2

REPORT INFORMATION
  Report Type: Spontaneous
  Country: US (occurrence: US)
  Receive Date: 20140623
  Receipt Date: 20140623
  Transmission Date: 20141212
  Serious: No
  Sender: FDA-Public Use
  Company Number: US-ZOGENIX, INC.-2011ZX000544

PATIENT
  Sex: Female
  Weight: 45.4 kg

DRUGS (5)
  1. SUMAVEL DOSEPRO [Suspect]
     Indication: MIGRAINE
  2. AMITRIPTYLINE [Concomitant]
     Route: 048
  3. AMITRIPTYLINE [Concomitant]
     Route: 048
  4. AMITRIPTYLINE [Concomitant]
     Route: 048
  5. AMITRIPTYLINE [Concomitant]
     Route: 048

REACTIONS (2)
  - Migraine [Recovered/Resolved]
  - Nausea [Recovered/Resolved]
